FAERS Safety Report 21794771 (Version 2)
Quarter: 2023Q1

REPORT INFORMATION
  Report Type: Spontaneous
  Country: US (occurrence: US)
  Receive Date: 20221229
  Receipt Date: 20230301
  Transmission Date: 20230418
  Serious: No
  Sender: FDA-Public Use
  Company Number: US-PFIZER INC-202101360274

PATIENT
  Age: 93 Year
  Sex: Female
  Weight: 63.492 kg

DRUGS (1)
  1. TOVIAZ [Suspect]
     Active Substance: FESOTERODINE FUMARATE
     Indication: Urinary incontinence
     Dosage: 8 MG, 1X/DAY
     Route: 048

REACTIONS (1)
  - Drug ineffective [Unknown]
